FAERS Safety Report 23965717 (Version 1)
Quarter: 2024Q2

REPORT INFORMATION
  Report Type: Spontaneous
  Country: FR (occurrence: FR)
  Receive Date: 20240612
  Receipt Date: 20240612
  Transmission Date: 20240715
  Serious: Yes (Hospitalization, Other)
  Sender: FDA-Public Use
  Company Number: FR-ROCHE-2941089

PATIENT
  Age: 64 Year
  Sex: Male
  Weight: 65 kg

DRUGS (32)
  1. PEMETREXED [Suspect]
     Active Substance: PEMETREXED
     Indication: Non-small cell lung cancer
     Dosage: 950 MILLIGRAM, 3 TIMES A WEEKS
     Route: 042
     Dates: start: 20210610
  2. PEMETREXED [Suspect]
     Active Substance: PEMETREXED
     Dosage: 900 MILLIGRAM (DOSE LAST STUDY DRUG ADMIN PRIOR AE/SAE: 900 MGSTART DATE OF MOST RECENT DOSE OF STUD
     Route: 042
  3. CISPLATIN [Suspect]
     Active Substance: CISPLATIN
     Indication: Non-small cell lung cancer
     Dosage: 143 MILLIGRAM, 3 TIMES A WEEK
     Route: 042
     Dates: start: 20210610
  4. CISPLATIN [Suspect]
     Active Substance: CISPLATIN
     Dosage: 139 MILLIGRAM (DOSE LAST STUDY DRUG ADMIN PRIOR AE/SAE: 139 MGSTART DATE OF MOST RECENT DOSE OF STUD
     Route: 042
  5. ALPRAZOLAM [Concomitant]
     Active Substance: ALPRAZOLAM
     Indication: Anxiety
     Dosage: 25 MILLIGRAM, ONCE A DAY
     Route: 065
     Dates: start: 20210722
  6. PANTOPRAZOLE [Concomitant]
     Active Substance: PANTOPRAZOLE
     Indication: Product used for unknown indication
     Dosage: 20 MILLIGRAM, ONCE A DAY
     Route: 065
  7. ATENOLOL [Concomitant]
     Active Substance: ATENOLOL
     Indication: Hypertension
     Dosage: 100 MILLIGRAM
     Route: 065
  8. CEFAZOLIN [Concomitant]
     Active Substance: CEFAZOLIN
     Indication: General physical health deterioration
     Dosage: 2 GRAM, 0.33 DAYS
     Route: 065
     Dates: start: 20211113
  9. TAHOR [Concomitant]
     Active Substance: ATORVASTATIN CALCIUM
     Indication: Hypercholesterolaemia
     Dosage: 10 MILLIGRAM, ONCE A DAY
     Route: 065
  10. Microlax [Concomitant]
     Indication: Prophylaxis
     Dosage: UNK
     Route: 065
     Dates: start: 20210610
  11. RAMIPRIL [Concomitant]
     Active Substance: RAMIPRIL
     Indication: Hypertension
     Dosage: 10 MILLIGRAM, ONCE A DAY
     Route: 065
  12. POTASSIUM CHLORIDE [Concomitant]
     Active Substance: POTASSIUM CHLORIDE
     Indication: Hypokalaemia
     Dosage: 1200 MILLIGRAM, TWO TIMES A DAY
     Route: 065
     Dates: start: 20210803
  13. PEMBROLIZUMAB [Concomitant]
     Active Substance: PEMBROLIZUMAB
     Indication: Non-small cell lung cancer
     Dosage: 3 TIMES A WEEK,START DATE OF MOST RECENT DOSE OF STUDY DRUG PRIOR TO AE/SAE 29-SEP-2021
     Route: 065
     Dates: start: 20210610
  14. ATEZOLIZUMAB [Concomitant]
     Active Substance: ATEZOLIZUMAB
     Indication: Non-small cell lung cancer
     Dosage: 3 TIMES A WEEK, START DATE OF MOST RECENT DOSE OF STUDY DRUG PRIOR TO AE/SAE: 29/SEP/2021
     Route: 065
     Dates: start: 20210610
  15. MAGNESIUM [Concomitant]
     Active Substance: MAGNESIUM
     Indication: Hypomagnesaemia
     Dosage: UNK UNK, TWO TIMES A DAY
     Route: 065
     Dates: start: 20210913
  16. LIDOCAINE [Concomitant]
     Active Substance: LIDOCAINE
     Indication: General physical health deterioration
     Dosage: UNK UNK, ONCE A DAY
     Route: 065
     Dates: start: 202111
  17. ASPIRIN [Concomitant]
     Active Substance: ASPIRIN
     Indication: Product used for unknown indication
     Dosage: 160 MILLIGRAM, ONCE A DAY
     Route: 065
     Dates: start: 20210720
  18. XANAX [Concomitant]
     Active Substance: ALPRAZOLAM
     Indication: Product used for unknown indication
     Dosage: UNK
     Route: 065
     Dates: start: 20210803
  19. AMOXICILLIN\CLAVULANIC ACID [Concomitant]
     Active Substance: AMOXICILLIN\CLAVULANIC ACID
     Indication: Product used for unknown indication
     Dosage: 1 GRAM, 3 TIMES A DAY
     Route: 065
     Dates: start: 20210720
  20. GLYCOPYRRONIUM\INDACATEROL [Concomitant]
     Active Substance: GLYCOPYRRONIUM\INDACATEROL
     Indication: Product used for unknown indication
     Dosage: UNK
     Route: 065
  21. TIRAGOLUMAB [Concomitant]
     Active Substance: TIRAGOLUMAB
     Indication: Non-small cell lung cancer
     Dosage: START DATE OF MOST RECENT DOSE OF STUDY DRUG PRIOR TO AE/SAE: 29/SEP/2021
     Route: 065
     Dates: start: 20210610
  22. HYDROCORTISONE [Concomitant]
     Active Substance: HYDROCORTISONE\HYDROCORTISONE ACETATE
     Indication: Hypophysitis
     Dosage: 30 MILLIGRAM, ONCE A DAY
     Route: 065
     Dates: start: 20211103
  23. ATENOLOL [Concomitant]
     Active Substance: ATENOLOL
     Indication: Hypertension
     Dosage: 100 MILLIGRAM, ONCE A DAY
     Route: 065
  24. FEBUXOSTAT [Concomitant]
     Active Substance: FEBUXOSTAT
     Indication: Hyperuricaemia
     Dosage: 80 MILLIGRAM, ONCE A DAY
     Route: 065
  25. PIPERACILLIN SODIUM\TAZOBACTAM SODIUM [Concomitant]
     Active Substance: PIPERACILLIN SODIUM\TAZOBACTAM SODIUM
     Indication: Hyperthermia
     Dosage: 2 GRAM, TWO TIMES A DAY
     Dates: start: 20210629
  26. PIPERACILLIN SODIUM\TAZOBACTAM SODIUM [Concomitant]
     Active Substance: PIPERACILLIN SODIUM\TAZOBACTAM SODIUM
     Dosage: 4 GRAM, 3 TIMES A DAY
     Dates: start: 20210803, end: 202111
  27. ACETAMINOPHEN [Concomitant]
     Active Substance: ACETAMINOPHEN
     Indication: Chest pain
     Dosage: 1000 MILLIGRAM, 3 TIMES A DAY
     Route: 065
     Dates: start: 20210609
  28. PRIMPERAN [Concomitant]
     Active Substance: METOCLOPRAMIDE HYDROCHLORIDE
     Indication: Product used for unknown indication
     Dosage: UNK
     Route: 065
     Dates: start: 20210803
  29. SKENAN [Concomitant]
     Active Substance: MORPHINE SULFATE
     Indication: General physical health deterioration
     Dosage: 5 MILLIGRAM
     Route: 065
     Dates: start: 202111
  30. SKENAN [Concomitant]
     Active Substance: MORPHINE SULFATE
     Dosage: 10 MILLIGRAM, TWO TIMES A DAY
     Route: 065
     Dates: start: 202111
  31. FLUCONAZOLE [Concomitant]
     Active Substance: FLUCONAZOLE
     Indication: Product used for unknown indication
     Dosage: 200 MILLIGRAM
     Route: 065
     Dates: start: 20210803, end: 202111
  32. KARDEGIC [Concomitant]
     Active Substance: ASPIRIN DL-LYSINE
     Indication: Product used for unknown indication
     Dosage: 160 MILLIGRAM (GIVEN FOR PROPHYLAXIS)
     Route: 065

REACTIONS (2)
  - Pulmonary sepsis [Recovered/Resolved]
  - Sepsis [Recovered/Resolved]

NARRATIVE: CASE EVENT DATE: 20211016
